FAERS Safety Report 7121475-3 (Version None)
Quarter: 2010Q4

REPORT INFORMATION
  Report Type: 
  Country: None (occurrence: None)
  Receive Date: 20101124
  Receipt Date: 20101116
  Transmission Date: 20110411
  Serious: Yes (Other)
  Sender: FDA-Public Use
  Company Number: CA-JNJFOC-20101106366

PATIENT
  Age: 44 Year
  Sex: Male
  Weight: 89 kg

DRUGS (2)
  1. REMICADE [Suspect]
     Indication: CROHN'S DISEASE
     Dosage: 17TH INFUSION
     Route: 042
  2. REMICADE [Suspect]
     Route: 042

REACTIONS (2)
  - LETHARGY [None]
  - PALPITATIONS [None]
